FAERS Safety Report 6821478-X (Version None)
Quarter: 2010Q3

REPORT INFORMATION
  Report Type: 
  Country: None (occurrence: None)
  Receive Date: 20100707
  Receipt Date: 20080902
  Transmission Date: 20110219
  Serious: No
  Sender: FDA-Public Use
  Company Number: US-PFIZER INC-2008074137

PATIENT
  Sex: Male

DRUGS (3)
  1. ZOLOFT [Suspect]
     Dates: start: 20080601
  2. ARICEPT [Suspect]
     Indication: DEMENTIA ALZHEIMER'S TYPE
     Dates: start: 20080601
  3. CARDIOVASCULAR SYSTEM DRUGS [Concomitant]

REACTIONS (2)
  - ABNORMAL BEHAVIOUR [None]
  - AGITATION [None]
